FAERS Safety Report 10085785 (Version 1)
Quarter: 2014Q2

REPORT INFORMATION
  Report Type: Spontaneous
  Country: US (occurrence: US)
  Receive Date: 20140418
  Receipt Date: 20140418
  Transmission Date: 20141212
  Serious: No
  Sender: FDA-Public Use
  Company Number: US-PFIZER INC-2014108249

PATIENT
  Age: 69 Year
  Sex: Male

DRUGS (1)
  1. GABAPENTIN [Suspect]
     Indication: POST HERPETIC NEURALGIA
     Dosage: 300 MG, UNK

REACTIONS (1)
  - Somnolence [Unknown]
